FAERS Safety Report 13748775 (Version 5)
Quarter: 2018Q1

REPORT INFORMATION
  Report Type: Report from Study
  Country: US (occurrence: US)
  Receive Date: 20170713
  Receipt Date: 20180110
  Transmission Date: 20180508
  Serious: Yes (Hospitalization)
  Sender: FDA-Public Use
  Company Number: US-ROCHE-1962310

PATIENT
  Age: 69 Year
  Sex: Male
  Weight: 102.8 kg

DRUGS (32)
  1. ATEZOLIZUMAB. [Suspect]
     Active Substance: ATEZOLIZUMAB
     Dosage: CYCLE 4, DAY 15 FOR 30MIN
     Route: 042
     Dates: start: 20170511, end: 20170511
  2. CPI-444 (ADENOSINE-A2A RECEPTOR ANTAGONIST) [Suspect]
     Active Substance: CIFORADENANT
     Dosage: CYCLE 3, DAY 1
     Route: 048
     Dates: start: 20170330, end: 20170417
  3. NORVASC [Concomitant]
     Active Substance: AMLODIPINE BESYLATE
     Route: 065
     Dates: start: 20170117
  4. LIDOCAINE. [Concomitant]
     Active Substance: LIDOCAINE
     Route: 065
     Dates: start: 20170317
  5. LISINOPRIL. [Concomitant]
     Active Substance: LISINOPRIL
     Route: 065
     Dates: start: 2017, end: 20170727
  6. LOVENOX [Concomitant]
     Active Substance: ENOXAPARIN SODIUM
     Route: 065
     Dates: start: 20170621, end: 20170622
  7. ACETAMINOPHEN. [Concomitant]
     Active Substance: ACETAMINOPHEN
     Route: 065
     Dates: start: 20170621, end: 20170621
  8. ATEZOLIZUMAB. [Suspect]
     Active Substance: ATEZOLIZUMAB
     Indication: RENAL CELL CARCINOMA
     Dosage: COHORT 4 C1D1 (CYCLE1, DAY 1) FOR 30 MIN
     Route: 042
     Dates: start: 20170202, end: 20170202
  9. ATEZOLIZUMAB. [Suspect]
     Active Substance: ATEZOLIZUMAB
     Dosage: CYCLE 3, DAY 1 FOR 30MIN
     Route: 042
     Dates: start: 20170330, end: 20170330
  10. ATEZOLIZUMAB. [Suspect]
     Active Substance: ATEZOLIZUMAB
     Dosage: CYCLE 3, DAY 15 FOR 30MIN
     Route: 042
     Dates: start: 20170413, end: 20170413
  11. CPI-444 (ADENOSINE-A2A RECEPTOR ANTAGONIST) [Suspect]
     Active Substance: CIFORADENANT
     Dosage: CYCLE 2, DAY 1 30MIN
     Route: 048
     Dates: start: 20170302
  12. CPI-444 (ADENOSINE-A2A RECEPTOR ANTAGONIST) [Suspect]
     Active Substance: CIFORADENANT
     Dosage: CYCLE 4, DAY 1
     Route: 048
     Dates: start: 20170428
  13. CPI-444 (ADENOSINE-A2A RECEPTOR ANTAGONIST) [Suspect]
     Active Substance: CIFORADENANT
     Dosage: CYCLE 5 DAY 1
     Route: 048
     Dates: start: 20170525, end: 20170621
  14. CPI-444 (ADENOSINE-A2A RECEPTOR ANTAGONIST) [Suspect]
     Active Substance: CIFORADENANT
     Dosage: CYCLE 6 DAY 1
     Route: 048
     Dates: start: 20170712, end: 20170714
  15. OXYCODONE [Concomitant]
     Active Substance: OXYCODONE
     Route: 065
     Dates: start: 20170622, end: 20170623
  16. TYLENOL [Concomitant]
     Active Substance: ACETAMINOPHEN
  17. ATEZOLIZUMAB. [Suspect]
     Active Substance: ATEZOLIZUMAB
     Dosage: CYCLE 5, DAY 15 30 MIN
     Route: 042
     Dates: start: 20170608, end: 20170608
  18. CPI-444 (ADENOSINE-A2A RECEPTOR ANTAGONIST) [Suspect]
     Active Substance: CIFORADENANT
     Indication: RENAL CELL CARCINOMA
     Dosage: CYCLE1, DAY 1
     Route: 048
     Dates: start: 20170202
  19. SIMETHICONE (DIMETHICONE) [Concomitant]
     Active Substance: DIMETHICONE
     Route: 065
     Dates: start: 20170621, end: 20170621
  20. ATEZOLIZUMAB. [Suspect]
     Active Substance: ATEZOLIZUMAB
     Dosage: CYCLE 4, DAY 1 FOR 30 MIN
     Route: 042
     Dates: start: 20170427, end: 20170427
  21. CPI-444 (ADENOSINE-A2A RECEPTOR ANTAGONIST) [Suspect]
     Active Substance: CIFORADENANT
     Route: 048
     Dates: start: 20170417
  22. PROTONIX [Concomitant]
     Active Substance: PANTOPRAZOLE SODIUM
     Route: 065
     Dates: start: 20170622
  23. XYLOCAINE [Concomitant]
     Active Substance: LIDOCAINE HYDROCHLORIDE
     Route: 065
     Dates: start: 20170621, end: 20170621
  24. ATEZOLIZUMAB. [Suspect]
     Active Substance: ATEZOLIZUMAB
     Dosage: CYCLE 2, DAY 1 FOR 30MIN
     Route: 042
     Dates: start: 20170302, end: 20170302
  25. SUBLIMAZE [Concomitant]
     Active Substance: FENTANYL CITRATE
     Route: 065
     Dates: start: 20170317
  26. PERI-COLACE [Concomitant]
     Active Substance: CASANTHRANOL\DOCUSATE SODIUM
     Route: 065
     Dates: start: 20170622, end: 20170623
  27. ATEZOLIZUMAB. [Suspect]
     Active Substance: ATEZOLIZUMAB
     Dosage: CYCLE 1, DAY 14 FOR 30MIN
     Route: 042
     Dates: start: 20170216, end: 20170216
  28. ATEZOLIZUMAB. [Suspect]
     Active Substance: ATEZOLIZUMAB
     Dosage: CYCLE 2, DAY 15 FOR 30MIN
     Route: 042
     Dates: start: 20170316, end: 20170316
  29. ATEZOLIZUMAB. [Suspect]
     Active Substance: ATEZOLIZUMAB
     Dosage: CYCLE 5, DAY 1 FOR 30 MIN
     Route: 042
     Dates: start: 20170525, end: 20170525
  30. ATEZOLIZUMAB. [Suspect]
     Active Substance: ATEZOLIZUMAB
     Dosage: CYCLE 6 DAY 1 FOR 30 MIN
     Route: 042
     Dates: start: 20170712, end: 20170712
  31. ZOFRAN [Concomitant]
     Active Substance: ONDANSETRON HYDROCHLORIDE
     Route: 065
     Dates: start: 20170317
  32. FLOMAX [Concomitant]
     Active Substance: TAMSULOSIN HYDROCHLORIDE
     Route: 065
     Dates: start: 20170525

REACTIONS (1)
  - Inflammatory pain [Recovered/Resolved]

NARRATIVE: CASE EVENT DATE: 20170620
